FAERS Safety Report 8724045 (Version 2)
Quarter: 2012Q4

REPORT INFORMATION
  Report Type: 
  Country: GB (occurrence: GB)
  Receive Date: 20120815
  Receipt Date: 20120829
  Transmission Date: 20130627
  Serious: Yes (Hospitalization, Other)
  Sender: FDA-Public Use
  Company Number: GB-ASTELLAS-2012EU005630

PATIENT
  Age: 78 Year
  Sex: Female
  Weight: 93.4 kg

DRUGS (6)
  1. VESICARE [Suspect]
     Indication: HYPERTONIC BLADDER
     Dosage: 5 mg, UID/QD
     Route: 048
     Dates: start: 20120202, end: 20120703
  2. AZOPT [Concomitant]
     Dosage: UNK
     Route: 065
  3. CEFALEXIN [Concomitant]
     Dosage: UNK
     Route: 065
  4. SOTALOL [Concomitant]
     Indication: ATRIAL FIBRILLATION
     Dosage: UNK
     Route: 065
  5. SOTALOL [Concomitant]
     Indication: SICK SINUS SYNDROME
  6. XALATAN [Concomitant]
     Dosage: UNK
     Route: 065

REACTIONS (1)
  - Visual impairment [Recovered/Resolved]
